FAERS Safety Report 4999732-6 (Version None)
Quarter: 2006Q2

REPORT INFORMATION
  Report Type: 
  Country: None (occurrence: None)
  Receive Date: 20060511
  Receipt Date: 20060505
  Transmission Date: 20061013
  Serious: Yes (Other)
  Sender: FDA-Public Use
  Company Number: US-GLAXOSMITHKLINE-A0604516A

PATIENT
  Age: 43 Year
  Sex: Male

DRUGS (4)
  1. AVANDIA [Suspect]
     Indication: DIABETES MELLITUS NON-INSULIN-DEPENDENT
     Dosage: 2MG PER DAY
     Route: 048
  2. METFORMIN [Suspect]
  3. LIPITOR [Concomitant]
  4. ANTI-HYPERTENSIVE [Concomitant]

REACTIONS (2)
  - DIABETES MELLITUS INADEQUATE CONTROL [None]
  - GASTROINTESTINAL DISORDER [None]
